FAERS Safety Report 16001296 (Version 1)
Quarter: 2019Q1

REPORT INFORMATION
  Report Type: Spontaneous
  Country: US (occurrence: US)
  Receive Date: 20190225
  Receipt Date: 20190225
  Transmission Date: 20190418
  Serious: No
  Sender: FDA-Public Use
  Company Number: US-TEVA-2019-US-1016930

PATIENT

DRUGS (1)
  1. NIACIN (ANTIHYPERLIPIDEMIC) [Suspect]
     Active Substance: NIACIN
     Route: 065

REACTIONS (1)
  - Pharyngeal oedema [Unknown]
